FAERS Safety Report 9203581 (Version 1)
Quarter: 2013Q1

REPORT INFORMATION
  Report Type: Spontaneous
  Country: GB (occurrence: None)
  Receive Date: 20130329
  Receipt Date: 20130329
  Transmission Date: 20140127
  Serious: Yes (Other)
  Sender: FDA-Public Use
  Company Number: GER/UKI/13/0028754

PATIENT
  Age: 26 Year
  Sex: Male
  Weight: 70 kg

DRUGS (1)
  1. FINASTERIDE (FINASTERIDE) [Suspect]
     Indication: ANDROGENETIC ALOPECIA
     Route: 048
     Dates: start: 20121207, end: 20121227

REACTIONS (9)
  - Blunted affect [None]
  - Vision blurred [None]
  - Depression [None]
  - Erectile dysfunction [None]
  - Feeling abnormal [None]
  - Apathy [None]
  - Libido decreased [None]
  - Muscle atrophy [None]
  - Testicular atrophy [None]
